FAERS Safety Report 9420493 (Version 1)
Quarter: 2013Q3

REPORT INFORMATION
  Report Type: Spontaneous
  Country: DE (occurrence: None)
  Receive Date: 20130723
  Receipt Date: 20130723
  Transmission Date: 20140515
  Serious: Yes (Other)
  Sender: FDA-Public Use
  Company Number: 2013P1012238

PATIENT
  Age: 71 Year
  Sex: Female

DRUGS (4)
  1. AMOXICILLIN [Suspect]
     Indication: BRONCHITIS
  2. ASPIRIN [Suspect]
  3. SIMVASTATIN [Concomitant]
  4. EZETIMIBE [Concomitant]

REACTIONS (4)
  - Vestibular disorder [None]
  - Gait disturbance [None]
  - Oscillopsia [None]
  - Ataxia [None]
